FAERS Safety Report 14148430 (Version 3)
Quarter: 2017Q4

REPORT INFORMATION
  Report Type: Spontaneous
  Country: EG (occurrence: EG)
  Receive Date: 20171101
  Receipt Date: 20171124
  Transmission Date: 20180321
  Serious: Yes (Death, Hospitalization, Other)
  Sender: FDA-Public Use
  Company Number: EG-SA-2017SA211186

PATIENT
  Age: 15 Month
  Sex: Male
  Weight: 8 kg

DRUGS (1)
  1. CEREZYME [Suspect]
     Active Substance: IMIGLUCERASE
     Indication: GAUCHER^S DISEASE TYPE III
     Dosage: DOSE: 60/KG
     Route: 041
     Dates: start: 20161006, end: 20161229

REACTIONS (6)
  - Sepsis [Fatal]
  - Circulatory collapse [Fatal]
  - Disseminated intravascular coagulation [Fatal]
  - Pneumonia [Fatal]
  - Septic shock [Fatal]
  - Respiratory failure [Unknown]

NARRATIVE: CASE EVENT DATE: 20161231
